FAERS Safety Report 20670643 (Version 1)
Quarter: 2022Q2

REPORT INFORMATION
  Report Type: Spontaneous
  Country: US (occurrence: None)
  Receive Date: 20220404
  Receipt Date: 20220404
  Transmission Date: 20220721
  Serious: Yes (Death)
  Sender: FDA-Public Use
  Company Number: US-ROCHE-3066947

PATIENT
  Age: 81 Year
  Sex: Female

DRUGS (20)
  1. ESBRIET [Suspect]
     Active Substance: PIRFENIDONE
     Indication: Interstitial lung disease
     Dosage: 1 TABLET 3 TIMES DAILY
     Route: 048
     Dates: start: 20211117, end: 20220314
  2. CODEINE SULFATE [Concomitant]
     Active Substance: CODEINE SULFATE
  3. ALBUTEROL [Concomitant]
     Active Substance: ALBUTEROL
     Dosage: 1.25MG/3
  4. BYSTOLIC [Concomitant]
     Active Substance: NEBIVOLOL HYDROCHLORIDE
  5. CRESTOR [Concomitant]
     Active Substance: ROSUVASTATIN CALCIUM
  6. DILTIAZEM [Concomitant]
     Active Substance: DILTIAZEM
  7. ELIQUIS [Concomitant]
     Active Substance: APIXABAN
  8. EYE DROPS (UNK INGREDIENTS) [Concomitant]
     Dosage: SOL 0.05%
  9. FUROSEMIDE [Concomitant]
     Active Substance: FUROSEMIDE
     Dosage: SOL 10MG/ML
  10. IPRATROPIUM BROMIDE [Concomitant]
     Active Substance: IPRATROPIUM BROMIDE
  11. IRBESARTAN [Concomitant]
     Active Substance: IRBESARTAN
  12. LEVOTHYROXINE [Concomitant]
     Active Substance: LEVOTHYROXINE
  13. LORATADINE [Concomitant]
     Active Substance: LORATADINE
  14. LORAZEPAM [Concomitant]
     Active Substance: LORAZEPAM
  15. MONTELUKAST SODIUM [Concomitant]
     Active Substance: MONTELUKAST SODIUM
  16. PANTOPRAZOLE [Concomitant]
     Active Substance: PANTOPRAZOLE
  17. POTASSIUM ASPARTATE [Concomitant]
     Active Substance: POTASSIUM ASPARTATE
  18. PREDNISONE [Concomitant]
     Active Substance: PREDNISONE
  19. MINERALS\VITAMINS [Concomitant]
     Active Substance: MINERALS\VITAMINS
  20. VENLAFAXINE [Concomitant]
     Active Substance: VENLAFAXINE HYDROCHLORIDE

REACTIONS (1)
  - Death [Fatal]

NARRATIVE: CASE EVENT DATE: 20220314
